FAERS Safety Report 7642429-4 (Version None)
Quarter: 2011Q3

REPORT INFORMATION
  Report Type: 
  Country: None (occurrence: None)
  Receive Date: 20110728
  Receipt Date: 20101210
  Transmission Date: 20111222
  Serious: No
  Sender: FDA-Public Use
  Company Number: US-MYLANLABS-2010S1022739

PATIENT
  Age: 66 Year
  Sex: Female

DRUGS (2)
  1. LEVOTHYROXINE SODIUM [Suspect]
     Indication: HYPOTHYROIDISM
     Route: 048
     Dates: start: 20101101, end: 20101208
  2. LEVOTHYROXINE SODIUM [Suspect]
     Route: 048
     Dates: start: 20101209

REACTIONS (5)
  - TREMOR [None]
  - DRUG EFFECT INCREASED [None]
  - CONSTIPATION [None]
  - PALPITATIONS [None]
  - INSOMNIA [None]
